FAERS Safety Report 16907361 (Version 5)
Quarter: 2020Q2

REPORT INFORMATION
  Report Type: Report from Study
  Country: EG (occurrence: EG)
  Receive Date: 20191011
  Receipt Date: 20200424
  Transmission Date: 20200713
  Serious: Yes (Other)
  Sender: FDA-Public Use
  Company Number: EG-BAYER-2019-178026

PATIENT
  Age: 31 Year
  Sex: Female

DRUGS (12)
  1. PANADOL EXTRA [Concomitant]
     Active Substance: ACETAMINOPHEN\CAFFEINE
  2. MULTIRELAX [Concomitant]
     Indication: MUSCLE RELAXANT THERAPY
     Dosage: AT NEEDED
  3. BETAFERON [Suspect]
     Active Substance: INTERFERON BETA-1B
     Indication: MULTIPLE SCLEROSIS
     Dosage: UNK
     Route: 058
     Dates: start: 201909, end: 202002
  4. TRYPTIZOL [Concomitant]
     Active Substance: AMITRIPTYLINE HYDROCHLORIDE
     Indication: SLEEP DISORDER THERAPY
     Dosage: 3 DF, QD
  5. PREGABALIN. [Concomitant]
     Active Substance: PREGABALIN
     Dosage: UNK UNK, PRN
  6. BRUFEN [IBUPROFEN] [Concomitant]
     Active Substance: IBUPROFEN
  7. BETAFERON [Suspect]
     Active Substance: INTERFERON BETA-1B
     Indication: MULTIPLE SCLEROSIS
     Dosage: 1 ML, QOD
     Route: 058
     Dates: start: 20190921, end: 20190928
  8. TRYPTIZOL [AMITRIPTYLINE PAMOATE] [Concomitant]
     Dosage: 1 DF, QD
     Dates: start: 202001
  9. MYOFEN [BACLOFEN] [Concomitant]
     Indication: MUSCLE RELAXANT THERAPY
     Dosage: UNK, PRN
  10. BETAFOS [Concomitant]
  11. BETASERC [Concomitant]
     Active Substance: BETAHISTINE
     Dosage: 1 DF, QD
     Dates: start: 202001
  12. CYMBALTA [Concomitant]
     Active Substance: DULOXETINE HYDROCHLORIDE
     Dosage: 1 DF, QD
     Dates: start: 202001

REACTIONS (30)
  - Injection site swelling [Not Recovered/Not Resolved]
  - Skin discolouration [Recovered/Resolved]
  - Fall [Recovering/Resolving]
  - Limb injury [Not Recovered/Not Resolved]
  - Rash macular [Not Recovered/Not Resolved]
  - Cardiac failure [Recovered/Resolved]
  - Myalgia [Recovered/Resolved]
  - Arthralgia [Recovered/Resolved]
  - Hypersensitivity [Recovered/Resolved]
  - Dyspnoea [Recovering/Resolving]
  - Skin atrophy [Not Recovered/Not Resolved]
  - Incorrect dose administered [Not Recovered/Not Resolved]
  - Dyskinesia [Not Recovered/Not Resolved]
  - Headache [Not Recovered/Not Resolved]
  - Dysgeusia [Recovered/Resolved]
  - Product prescribing issue [Not Recovered/Not Resolved]
  - Hyperaesthesia [Not Recovered/Not Resolved]
  - Injection site induration [Not Recovered/Not Resolved]
  - Headache [Not Recovered/Not Resolved]
  - Pyrexia [Recovered/Resolved]
  - Mood altered [Not Recovered/Not Resolved]
  - Inappropriate schedule of product administration [Not Recovered/Not Resolved]
  - Injection site erythema [Not Recovered/Not Resolved]
  - Injection site hypersensitivity [Not Recovered/Not Resolved]
  - Intentional dose omission [Recovered/Resolved]
  - Nervousness [Not Recovered/Not Resolved]
  - Injection site erythema [Not Recovered/Not Resolved]
  - Therapy cessation [Recovered/Resolved]
  - Skin mass [Not Recovered/Not Resolved]
  - Injection site reaction [None]

NARRATIVE: CASE EVENT DATE: 201909
